FAERS Safety Report 22267775 (Version 1)
Quarter: 2023Q2

REPORT INFORMATION
  Report Type: Spontaneous
  Country: US (occurrence: US)
  Receive Date: 20230430
  Receipt Date: 20230430
  Transmission Date: 20230721
  Serious: Yes (Life-Threatening, Other)
  Sender: FDA-Public Use
  Company Number: US-AMGEN-USASP2023069066

PATIENT
  Age: 62 Year
  Sex: Male

DRUGS (1)
  1. INFLIXIMAB [Suspect]
     Active Substance: INFLIXIMAB
     Indication: Cardiac sarcoidosis
     Route: 065

REACTIONS (5)
  - Disseminated toxoplasmosis [Unknown]
  - Complications of transplanted heart [Recovered/Resolved]
  - Hyperkalaemia [Unknown]
  - Renal failure [Unknown]
  - Off label use [Unknown]
